FAERS Safety Report 4922638-5 (Version None)
Quarter: 2006Q1

REPORT INFORMATION
  Report Type: 
  Country: None (occurrence: None)
  Receive Date: 20060223
  Receipt Date: 20060223
  Transmission Date: 20060701
  Serious: No
  Sender: FDA-Public Use
  Company Number: None

PATIENT
  Age: 19 Year
  Sex: Female
  Weight: 151.955 kg

DRUGS (1)
  1. ALIMPTA [Suspect]

REACTIONS (2)
  - DRUG TOXICITY [None]
  - NEPHROPATHY TOXIC [None]
